FAERS Safety Report 7455112-5 (Version None)
Quarter: 2011Q2

REPORT INFORMATION
  Report Type: 
  Country: None (occurrence: None)
  Receive Date: 20110503
  Receipt Date: 20100611
  Transmission Date: 20111010
  Serious: No
  Sender: FDA-Public Use
  Company Number: US-BAYER-201026981NA

PATIENT
  Sex: Female

DRUGS (1)
  1. YAZ [Suspect]
     Indication: POST COITAL CONTRACEPTION
     Dosage: UNK
     Dates: start: 20100610

REACTIONS (1)
  - VOMITING [None]
